FAERS Safety Report 10023686 (Version 1)
Quarter: 2014Q1

REPORT INFORMATION
  Report Type: Spontaneous
  Country: US (occurrence: None)
  Receive Date: 20140109
  Receipt Date: 20140109
  Transmission Date: 20141002
  Serious: Yes (Other)
  Sender: FDA-Public Use
  Company Number: 54973 AE # 1523

PATIENT
  Age: 4 Year
  Sex: Male

DRUGS (2)
  1. HYLAND^S COLD ^N COUGH 4 KIDS LIQUID [Suspect]
     Indication: PYREXIA
     Dosage: 1 TSP TWICE ON 12/20/13
  2. HYLAND^S COLD ^N COUGH 4 KIDS LIQUID [Suspect]
     Indication: NASOPHARYNGITIS
     Dosage: 1 TSP TWICE ON 12/20/13

REACTIONS (3)
  - Tic [None]
  - Tourette^s disorder [None]
  - Headache [None]
